FAERS Safety Report 4304302-9 (Version None)
Quarter: 2004Q1

REPORT INFORMATION
  Report Type: 
  Country: None (occurrence: None)
  Receive Date: 20040225
  Receipt Date: 20040213
  Transmission Date: 20041129
  Serious: Yes (Other)
  Sender: FDA-Public Use
  Company Number: REL-INN-104

PATIENT
  Age: 91 Year
  Sex: Female

DRUGS (4)
  1. INNOPRAN XL [Suspect]
     Indication: HYPERTENSION
     Dosage: 80 MG QD ORAL
     Route: 048
     Dates: start: 20031001, end: 20040101
  2. PLAVIX [Concomitant]
  3. NORVASC [Concomitant]
  4. TOPROL-XL [Concomitant]

REACTIONS (4)
  - ANGIOPATHY [None]
  - BLOOD PRESSURE INADEQUATELY CONTROLLED [None]
  - HEART RATE DECREASED [None]
  - HEART RATE IRREGULAR [None]
